FAERS Safety Report 15836691 (Version 2)
Quarter: 2025Q3

REPORT INFORMATION
  Report Type: Spontaneous
  Country: BR (occurrence: BR)
  Receive Date: 20190117
  Receipt Date: 20250724
  Transmission Date: 20251021
  Serious: Yes (Death, Life-Threatening, Hospitalization, Other)
  Sender: AUROBINDO
  Company Number: BR-AUROBINDO-AUR-APL-2019-000463

PATIENT
  Age: 57 Year
  Sex: Male

DRUGS (4)
  1. MEROPENEM [Suspect]
     Active Substance: MEROPENEM
     Indication: Pseudomonas infection
     Dosage: 2000 MILLIGRAM, ONCE A DAY
     Route: 042
     Dates: start: 2014, end: 2014
  2. MEROPENEM [Suspect]
     Active Substance: MEROPENEM
     Dosage: 1000 MILLIGRAM, ONCE A DAY
     Route: 042
  3. TEICOPLANIN [Suspect]
     Active Substance: TEICOPLANIN
     Indication: Pseudomonas infection
     Dosage: 600 MILLIGRAM, ONCE A DAY
     Route: 042
     Dates: start: 2014, end: 2014
  4. TIGECYCLINE [Concomitant]
     Active Substance: TIGECYCLINE
     Indication: Pseudomonas infection
     Dosage: 100 MILLIGRAM, ONCE A DAY
     Route: 065

REACTIONS (4)
  - Sepsis [Fatal]
  - Cardio-respiratory arrest [Fatal]
  - Condition aggravated [Fatal]
  - Myocardial infarction [Fatal]

NARRATIVE: CASE EVENT DATE: 20140101
